FAERS Safety Report 4828413-4 (Version None)
Quarter: 2005Q4

REPORT INFORMATION
  Report Type: 
  Country: None (occurrence: None)
  Receive Date: 20051115
  Receipt Date: 20051111
  Transmission Date: 20060501
  Serious: Yes (Death, Hospitalization)
  Sender: FDA-Public Use
  Company Number: ZA-BRISTOL-MYERS SQUIBB COMPANY-13178306

PATIENT
  Age: 2 Year
  Sex: Male
  Weight: 14 kg

DRUGS (7)
  1. ATAZANAVIR [Suspect]
     Indication: HIV INFECTION
     Route: 048
     Dates: start: 20050426, end: 20050804
  2. ZERIT [Suspect]
     Indication: HIV INFECTION
     Route: 048
  3. NORVIR [Suspect]
     Indication: HIV INFECTION
     Route: 048
     Dates: start: 20050426, end: 20050804
  4. LAMIVUDINE [Suspect]
     Indication: HIV INFECTION
     Route: 048
  5. BEROTEC [Concomitant]
     Dosage: ^BEROTEC: ATRAVENR NORMAL; SALINE NEBS 1 DAY (4 HOURLY)^
  6. EPILIM [Concomitant]
     Indication: EPILEPSY
     Dosage: DOSE REDUCED AT ADMISSION FROM 120 MG THREE TIMES DAILY TO 90 MG THREE TIMES DAILY
     Route: 048
     Dates: start: 20050101
  7. DIAZEPAM [Concomitant]
     Dosage: DIAZEPAM GIVEN DURING OUTPATIENT TREATMENT

REACTIONS (5)
  - BRONCHOPNEUMONIA [None]
  - BRONCHOSPASM [None]
  - MEDICATION ERROR [None]
  - PORENCEPHALY [None]
  - RENAL IMPAIRMENT [None]
